FAERS Safety Report 7236921-4 (Version None)
Quarter: 2011Q1

REPORT INFORMATION
  Report Type: 
  Country: None (occurrence: None)
  Receive Date: 20110121
  Receipt Date: 20110113
  Transmission Date: 20110831
  Serious: Yes (Other)
  Sender: FDA-Public Use
  Company Number: US-ASTRAZENECA-2007UW08957

PATIENT
  Age: 453 Month
  Sex: Male
  Weight: 92.5 kg

DRUGS (20)
  1. SEROQUEL [Suspect]
     Route: 048
     Dates: start: 20021024, end: 20031205
  2. PROPOXYPHENE-N [Concomitant]
     Dosage: TK 1 TO 2 TS PO Q 6 H PRN P
     Route: 048
     Dates: start: 20021014
  3. SEROQUEL [Suspect]
     Indication: BIPOLAR DISORDER
     Dosage: 25 TO 200 MG
     Route: 048
     Dates: start: 20021023
  4. SEROQUEL [Suspect]
     Dosage: 25MG, 200MG
     Route: 048
     Dates: start: 20040929, end: 20050613
  5. TRAZADONE [Concomitant]
     Dosage: 100 MG ONE PO HS PRN
     Route: 048
     Dates: start: 20050621
  6. KLONOPIN [Concomitant]
     Dates: start: 20050217
  7. CYMBALTA [Concomitant]
  8. ZOLOFT [Concomitant]
     Route: 048
     Dates: start: 20050217
  9. SEROQUEL [Suspect]
     Indication: DEPRESSION
     Dosage: 25 TO 200 MG
     Route: 048
     Dates: start: 20021023
  10. ABILIFY [Concomitant]
     Dates: start: 20080601
  11. LEXAPRO [Concomitant]
     Dates: start: 20040101
  12. SEROQUEL [Suspect]
     Indication: PSYCHOTIC DISORDER
     Dosage: 25 TO 200 MG
     Route: 048
     Dates: start: 20021023
  13. SEROQUEL [Suspect]
     Dosage: 25MG, 200MG
     Route: 048
     Dates: start: 20040929, end: 20050613
  14. SEROQUEL [Suspect]
     Route: 048
     Dates: start: 20021024, end: 20031205
  15. LAMICTAL [Concomitant]
     Dates: start: 20040101
  16. XANAX [Concomitant]
     Route: 048
     Dates: start: 20050621
  17. SEROQUEL [Suspect]
     Route: 048
     Dates: start: 20021024, end: 20031205
  18. SEROQUEL [Suspect]
     Dosage: 25MG, 200MG
     Route: 048
     Dates: start: 20040929, end: 20050613
  19. VIAGRA [Concomitant]
     Dosage: 50 TO 100 MG UTD
     Dates: start: 20020823
  20. DEPAKOTE ER [Concomitant]
     Indication: MIGRAINE
     Route: 048
     Dates: start: 20050217

REACTIONS (5)
  - ANXIETY [None]
  - TYPE 2 DIABETES MELLITUS [None]
  - GLYCOSURIA [None]
  - SPINAL FRACTURE [None]
  - INTERMITTENT EXPLOSIVE DISORDER [None]
